FAERS Safety Report 9936250 (Version 1)
Quarter: 2014Q1

REPORT INFORMATION
  Report Type: Spontaneous
  Country: US (occurrence: US)
  Receive Date: 20140228
  Receipt Date: 20140228
  Transmission Date: 20141002
  Serious: No
  Sender: FDA-Public Use
  Company Number: US-AMGEN-USASP2014000616

PATIENT
  Age: 41 Year
  Sex: Male

DRUGS (2)
  1. ENBREL [Suspect]
     Indication: RHEUMATOID ARTHRITIS
     Dosage: 50 MG, QWK
     Route: 058
     Dates: start: 20120208
  2. RECLAST [Concomitant]
     Dosage: UNK
     Route: 042
     Dates: start: 20131231

REACTIONS (1)
  - Influenza like illness [Not Recovered/Not Resolved]
